FAERS Safety Report 5650525-6 (Version None)
Quarter: 2008Q1

REPORT INFORMATION
  Report Type: 
  Country: None (occurrence: None)
  Receive Date: 20080305
  Receipt Date: 20080229
  Transmission Date: 20080703
  Serious: Yes (Other)
  Sender: FDA-Public Use
  Company Number: PHNU2008DE00796

PATIENT
  Age: 83 Year
  Sex: Male
  Weight: 85 kg

DRUGS (8)
  1. MOVICOL [Concomitant]
     Dosage: UNK, PRN
  2. TEGRETOL [Suspect]
     Indication: PROPHYLAXIS
     Dosage: 100 MG, BID
     Route: 048
  3. TEGRETOL [Suspect]
     Dosage: 1000 MG, BID
     Dates: start: 20080127, end: 20080128
  4. TEGRETOL [Suspect]
     Dosage: 200 MG/D
     Route: 048
     Dates: start: 20080201
  5. DIOVAN HCT [Concomitant]
     Indication: HYPERTENSION
     Dosage: UNK, UNK
     Route: 048
  6. SIMVASTATIN [Concomitant]
     Indication: PROPHYLAXIS
     Dosage: 20 MG/D
     Route: 048
  7. AGGRENOX [Concomitant]
     Indication: PROPHYLAXIS
     Dosage: 200/25 MG/D
     Route: 048
  8. PANTOZOL [Concomitant]
     Indication: PROPHYLAXIS AGAINST GASTROINTESTINAL ULCER
     Dosage: 40 MG/D
     Route: 048

REACTIONS (4)
  - ASTHENIA [None]
  - FATIGUE [None]
  - INCORRECT DOSE ADMINISTERED [None]
  - NAUSEA [None]
